FAERS Safety Report 19526454 (Version 1)
Quarter: 2021Q3

REPORT INFORMATION
  Report Type: Spontaneous
  Country: IT (occurrence: IT)
  Receive Date: 20210713
  Receipt Date: 20210713
  Transmission Date: 20211014
  Serious: Yes (Other)
  Sender: FDA-Public Use
  Company Number: IT-TEVA-2021-IT-1931321

PATIENT
  Age: 49 Year
  Sex: Female

DRUGS (3)
  1. PREDNISONE. [Suspect]
     Active Substance: PREDNISONE
     Dosage: FOR 4 WEEKS, FOLLOWED BY TAPERING AND DISCONTINUATION WITHIN 4 MONTHS
     Route: 048
  2. PREDNISONE. [Suspect]
     Active Substance: PREDNISONE
     Route: 048
  3. PREDNISONE. [Suspect]
     Active Substance: PREDNISONE
     Indication: AUTOIMMUNE HAEMOLYTIC ANAEMIA
     Dosage: FOR 2 WEEKS, FOLLOWED BY QUICK TAPERING AND DISCONTINUATION WITHIN 2 MONTHS
     Route: 048

REACTIONS (3)
  - Osteoporosis [Unknown]
  - Cushing^s syndrome [Unknown]
  - Hyperglycaemia [Unknown]
